FAERS Safety Report 24001469 (Version 1)
Quarter: 2024Q2

REPORT INFORMATION
  Report Type: Spontaneous
  Country: JP (occurrence: JP)
  Receive Date: 20240621
  Receipt Date: 20240621
  Transmission Date: 20240716
  Serious: Yes (Other)
  Sender: FDA-Public Use
  Company Number: JP-GSKJP-JP2024JPN072274

PATIENT
  Age: 52 Year
  Sex: Female

DRUGS (2)
  1. VIREAD [Suspect]
     Active Substance: TENOFOVIR DISOPROXIL FUMARATE
     Indication: Chronic hepatitis B
     Dosage: UNK, 6.5 YEARS
     Route: 065
  2. ADEFOVIR DIPIVOXIL [Suspect]
     Active Substance: ADEFOVIR DIPIVOXIL
     Indication: Chronic hepatitis B
     Dosage: UNK, ABOUT 3.5 YEARS
     Route: 065

REACTIONS (8)
  - Fanconi syndrome [Unknown]
  - Femoral neck fracture [Unknown]
  - Renal tubular disorder [Unknown]
  - Arthralgia [Unknown]
  - Road traffic accident [Unknown]
  - Hypophosphataemia [Recovering/Resolving]
  - Bone density decreased [Unknown]
  - Renal disorder [Recovering/Resolving]
